FAERS Safety Report 5196882-9 (Version None)
Quarter: 2007Q1

REPORT INFORMATION
  Report Type: 
  Country: None (occurrence: None)
  Receive Date: 20070103
  Receipt Date: 20061228
  Transmission Date: 20070707
  Serious: Yes (Other)
  Sender: FDA-Public Use
  Company Number: 2006UW18498

PATIENT
  Age: 12 Year
  Sex: Male

DRUGS (6)
  1. PULMICORT [Suspect]
     Dosage: 9 MONTHS OF THE YEAR
     Route: 055
     Dates: start: 20030101
  2. PULMICORT [Suspect]
     Dosage: DURING EXACERBATION
     Route: 055
     Dates: start: 20030101
  3. SINGULAIR [Concomitant]
  4. ZYRTEC [Concomitant]
  5. FLOVENT [Concomitant]
  6. ALBUTEROL [Concomitant]

REACTIONS (1)
  - OSTEOPENIA [None]
